FAERS Safety Report 4807141-5 (Version None)
Quarter: 2005Q4

REPORT INFORMATION
  Report Type: 
  Country: None (occurrence: None)
  Receive Date: 20051024
  Receipt Date: 20050810
  Transmission Date: 20060501
  Serious: Yes (Other)
  Sender: FDA-Public Use
  Company Number: 2005GB01558

PATIENT
  Age: 49 Year
  Sex: Female
  Weight: 66.8 kg

DRUGS (2)
  1. QUETIAPINE FUMARATE [Suspect]
     Indication: MANIA
     Dosage: 50MG NOCTE FOR 5 NIGHTS THEN 100MG NOCTE
     Route: 048
     Dates: start: 20050721, end: 20050730
  2. DEPAKOTE [Concomitant]
     Indication: MANIA
     Dosage: 1000MG MANE + 500MG NOCTE
     Route: 048
     Dates: start: 20050704

REACTIONS (1)
  - SLEEP APNOEA SYNDROME [None]
